FAERS Safety Report 9482946 (Version 2)
Quarter: 2013Q4

REPORT INFORMATION
  Report Type: Report from Study
  Country: PL (occurrence: PL)
  Receive Date: 20130828
  Receipt Date: 20131007
  Transmission Date: 20140711
  Serious: Yes (Death, Other)
  Sender: FDA-Public Use
  Company Number: PL-ROCHE-1267111

PATIENT
  Sex: 0

DRUGS (2)
  1. ALTEPLASE [Suspect]
     Indication: ISCHAEMIA
     Dosage: 54.1 MG (50-60 MG). 0.2 MG/ML1 MG/MINUTE FOR 15 MINUTES IN THE TREATMENT ROOM AND THEN 35 MG FOR 2 H
     Route: 042
  2. HEPARIN [Suspect]
     Indication: ISCHAEMIA
     Dosage: 500 U/HOUR
     Route: 065

REACTIONS (5)
  - Haemorrhage intracranial [Fatal]
  - Renal failure [Unknown]
  - Compartment syndrome [Unknown]
  - Peripheral embolism [Unknown]
  - Haematoma [Unknown]
